FAERS Safety Report 5630742-1 (Version None)
Quarter: 2008Q1

REPORT INFORMATION
  Report Type: 
  Country: None (occurrence: None)
  Receive Date: 20080219
  Receipt Date: 20080211
  Transmission Date: 20080703
  Serious: Yes (Hospitalization)
  Sender: FDA-Public Use
  Company Number: GB-JNJFOC-20071109894

PATIENT
  Sex: Female
  Weight: 62.5 kg

DRUGS (16)
  1. TRABCETEDIN [Suspect]
     Indication: OVARIAN CANCER
     Route: 042
  2. DOXORUBICIN HCL [Suspect]
     Indication: OVARIAN CANCER
     Route: 042
  3. DEXAMETHASONE TAB [Concomitant]
     Route: 048
  4. DEXAMETHASONE TAB [Concomitant]
     Indication: PROPHYLAXIS OF NAUSEA AND VOMITING
     Route: 048
  5. GRANISETRON [Concomitant]
     Route: 042
  6. GRANISETRON [Concomitant]
     Indication: PROPHYLAXIS OF NAUSEA AND VOMITING
     Route: 042
  7. PYRIDOXINE HYDROCHLORIDE [Concomitant]
     Route: 048
  8. LANSOPRAZOLE [Concomitant]
     Route: 048
  9. CORSODYL MW [Concomitant]
     Route: 048
  10. CORSODYL MW [Concomitant]
     Route: 048
  11. CORSODYL MW [Concomitant]
     Indication: GASTROINTESTINAL DISORDER THERAPY
     Route: 048
  12. FLUCLOXACILLIN [Concomitant]
     Route: 048
  13. DOMPERIDONE [Concomitant]
     Route: 048
  14. DOMPERIDONE [Concomitant]
     Indication: PROPHYLAXIS OF NAUSEA AND VOMITING
     Route: 048
  15. RED BLOOD CELLS [Concomitant]
     Dosage: TWO UNITS
     Route: 042
  16. CLARITHROMYCIN [Concomitant]
     Route: 048

REACTIONS (9)
  - CATHETER RELATED INFECTION [None]
  - FATIGUE [None]
  - LOWER RESPIRATORY TRACT INFECTION [None]
  - NEUTROPENIC SEPSIS [None]
  - PLEURAL EFFUSION [None]
  - POOR VENOUS ACCESS [None]
  - RASH [None]
  - SUBCLAVIAN VEIN THROMBOSIS [None]
  - VENA CAVA THROMBOSIS [None]
